FAERS Safety Report 7371495-9 (Version None)
Quarter: 2011Q1

REPORT INFORMATION
  Report Type: 
  Country: None (occurrence: None)
  Receive Date: 20110324
  Receipt Date: 20110322
  Transmission Date: 20110831
  Serious: Yes (Death, Hospitalization, Other)
  Sender: FDA-Public Use
  Company Number: US-SANOFI-AVENTIS-2011SA010541

PATIENT
  Age: 72 Year
  Sex: Male
  Weight: 77.3 kg

DRUGS (1)
  1. PLAVIX [Suspect]
     Indication: TRANSIENT ISCHAEMIC ATTACK
     Route: 048
     Dates: end: 20101007

REACTIONS (4)
  - FALL [None]
  - SUBDURAL HAEMATOMA [None]
  - OFF LABEL USE [None]
  - HEAD INJURY [None]
